FAERS Safety Report 12661084 (Version 2)
Quarter: 2016Q3

REPORT INFORMATION
  Report Type: Spontaneous
  Country: US (occurrence: US)
  Receive Date: 20160817
  Receipt Date: 20160901
  Transmission Date: 20161109
  Serious: No
  Sender: FDA-Public Use
  Company Number: US-RELYPSA-RLY2016000558

PATIENT
  Sex: Female

DRUGS (12)
  1. LEVOTHYROXINE SODIUM. [Concomitant]
     Active Substance: LEVOTHYROXINE SODIUM
  2. SIMVASTATIN. [Concomitant]
     Active Substance: SIMVASTATIN
  3. TYLENOL PM EXTRA STRENGTH [Concomitant]
     Active Substance: ACETAMINOPHEN\DIPHENHYDRAMINE HYDROCHLORIDE
  4. BUMETANIDE. [Concomitant]
     Active Substance: BUMETANIDE
  5. CARVEDILOL. [Concomitant]
     Active Substance: CARVEDILOL
  6. IRON [Concomitant]
     Active Substance: IRON
  7. NOVOLOG [Concomitant]
     Active Substance: INSULIN ASPART
  8. VELTASSA [Suspect]
     Active Substance: PATIROMER
     Indication: HYPERKALAEMIA
     Dosage: 8.4 G, O.D.
     Route: 048
     Dates: start: 20160325
  9. AMLODIPINE BESYLATE. [Concomitant]
     Active Substance: AMLODIPINE BESYLATE
  10. BUMEX [Concomitant]
     Active Substance: BUMETANIDE
  11. GABAPENTIN. [Concomitant]
     Active Substance: GABAPENTIN
  12. ULORIC [Concomitant]
     Active Substance: FEBUXOSTAT

REACTIONS (3)
  - Constipation [Unknown]
  - Peripheral swelling [Unknown]
  - Diarrhoea [Unknown]
